FAERS Safety Report 10208827 (Version 2)
Quarter: 2014Q4

REPORT INFORMATION
  Report Type: Spontaneous
  Country: ES (occurrence: ES)
  Receive Date: 20140530
  Receipt Date: 20141027
  Transmission Date: 20150528
  Serious: Yes (Hospitalization, Other)
  Sender: FDA-Public Use
  Company Number: ES-ASTRAZENECA-2014SE36332

PATIENT
  Sex: Male
  Weight: 67 kg

DRUGS (4)
  1. OMEPRAZOL [Concomitant]
     Active Substance: OMEPRAZOLE
  2. BRILIQUE [Suspect]
     Active Substance: TICAGRELOR
     Indication: ACUTE MYOCARDIAL INFARCTION
     Route: 048
     Dates: start: 20131213, end: 20140520
  3. ASPIRIN. [Concomitant]
     Active Substance: ASPIRIN
  4. B-BLOCKERS [Concomitant]

REACTIONS (2)
  - Iron deficiency anaemia [Unknown]
  - Haemorrhage [Unknown]
